FAERS Safety Report 4491120-4 (Version None)
Quarter: 2004Q4

REPORT INFORMATION
  Report Type: 
  Country: None (occurrence: None)
  Receive Date: 20040927
  Receipt Date: 20040728
  Transmission Date: 20050328
  Serious: No
  Sender: FDA-Public Use
  Company Number: USA040773925

PATIENT
  Age: 8 Year
  Sex: Male
  Weight: 36 kg

DRUGS (2)
  1. STRATTERA [Suspect]
     Indication: ATTENTION DEFICIT/HYPERACTIVITY DISORDER
     Dosage: 60 MG/1 DAY
     Dates: start: 20030701
  2. CONCERTA [Concomitant]

REACTIONS (4)
  - DISTURBANCE IN ATTENTION [None]
  - IMPULSIVE BEHAVIOUR [None]
  - LETHARGY [None]
  - MASKED FACIES [None]
